FAERS Safety Report 18296924 (Version 1)
Quarter: 2020Q3

REPORT INFORMATION
  Report Type: Report from Study
  Country: None (occurrence: US)
  Receive Date: 20200922
  Receipt Date: 20200922
  Transmission Date: 20201103
  Serious: Yes (Other)
  Sender: FDA-Public Use
  Company Number: US-ABBVIE-20K-163-3567338-00

PATIENT
  Sex: Male

DRUGS (1)
  1. VENCLEXTA [Suspect]
     Active Substance: VENETOCLAX
     Indication: CHRONIC LYMPHOCYTIC LEUKAEMIA
     Route: 048

REACTIONS (13)
  - Asthenia [Unknown]
  - Decreased appetite [Unknown]
  - Arthralgia [Unknown]
  - Heart rate increased [Unknown]
  - Fatigue [Unknown]
  - Hypersomnia [Unknown]
  - Cough [Unknown]
  - Upper-airway cough syndrome [Unknown]
  - Cryptococcosis [Unknown]
  - Purulent discharge [Unknown]
  - Dyspnoea exertional [Unknown]
  - Listless [Unknown]
  - Constipation [Unknown]

NARRATIVE: CASE EVENT DATE: 2020
